FAERS Safety Report 10182103 (Version 2)
Quarter: 2014Q4

REPORT INFORMATION
  Report Type: Spontaneous
  Country: GB (occurrence: GB)
  Receive Date: 20140520
  Receipt Date: 20141103
  Transmission Date: 20150528
  Serious: Yes (Hospitalization)
  Sender: FDA-Public Use
  Company Number: GB-009507513-1405GBR008812

PATIENT
  Age: 24 Year
  Sex: Female
  Weight: 75.5 kg

DRUGS (4)
  1. NEXPLANON [Suspect]
     Active Substance: ETONOGESTREL
     Indication: CONTRACEPTION
     Dosage: 68MG, UNK
     Route: 059
     Dates: start: 20140305, end: 20140325
  2. DESOGESTREL [Concomitant]
     Active Substance: DESOGESTREL
     Indication: CONTRACEPTION
     Dosage: 75 MICROGRAM, UNK
     Route: 048
     Dates: start: 20140205
  3. CETIRIZINE HYDROCHLORIDE. [Concomitant]
     Active Substance: CETIRIZINE HYDROCHLORIDE
     Indication: PRURITUS
     Dosage: 10MG, UNK
     Route: 048
     Dates: start: 20140324
  4. TRIMETHOPRIM. [Concomitant]
     Active Substance: TRIMETHOPRIM
     Indication: URINARY TRACT INFECTION
     Dosage: 100MG UNK
     Route: 048
     Dates: start: 20131217

REACTIONS (4)
  - Lethargy [Recovering/Resolving]
  - Liver function test abnormal [Not Recovered/Not Resolved]
  - Pruritus [Recovering/Resolving]
  - Abdominal pain [Recovering/Resolving]
